FAERS Safety Report 13192631 (Version 1)
Quarter: 2017Q1

REPORT INFORMATION
  Report Type: Spontaneous
  Country: US (occurrence: US)
  Receive Date: 20170207
  Receipt Date: 20170207
  Transmission Date: 20170428
  Serious: Yes (Other)
  Sender: FDA-Public Use
  Company Number: None

PATIENT
  Age: 60 Year
  Sex: Male
  Weight: 90.8 kg

DRUGS (14)
  1. GLARGINE LANTUS SOLOSTAR [Concomitant]
  2. METRO [Concomitant]
  3. TIME RELEASE INSULIN [Concomitant]
  4. HUMALOG KWIKPEN [Concomitant]
     Active Substance: INSULIN LISPRO
  5. WEGMANS MULTI VITIMIN + MINERALS WITH ANTIOXIDENT [Concomitant]
  6. CITRACAL MAX CALCIUM CITRATE + D3 [Concomitant]
  7. VITAMIN E [Concomitant]
     Active Substance: .ALPHA.-TOCOPHEROL
  8. FUROSE (LAXICS) [Concomitant]
  9. SEL [Concomitant]
  10. C ABSORBIC ACID [Concomitant]
  11. VITAMIN B COMPLEX [Concomitant]
     Active Substance: CYANOCOBALAMIN\DEXPANTHENOL\NIACINAMIDE\PYRIDOXINE HYDROCHLORIDE\RIBOFLAVIN 5^-PHOSPHATE SODIUM\THIAMINE HYDROCHLORIDE\VITAMIN B COMPLEX
  12. CEFTAROLINE 600MG/100ML [Suspect]
     Active Substance: CEFTAROLINE
     Indication: SINUSITIS
     Dosage: 600MG/100ML 2 IVS PER DAY?
     Route: 042
     Dates: start: 20151001, end: 20151105
  13. NYQUIL COLD AND FLU [Concomitant]
     Active Substance: ACETAMINOPHEN\DEXTROMETHORPHAN HYDROBROMIDE\DOXYLAMINE SUCCINATE
  14. FUROSEMIDE. [Concomitant]
     Active Substance: FUROSEMIDE

REACTIONS (1)
  - Ocular icterus [None]

NARRATIVE: CASE EVENT DATE: 20151001
